FAERS Safety Report 5379327-5 (Version None)
Quarter: 2007Q3

REPORT INFORMATION
  Report Type: 
  Country: None (occurrence: None)
  Receive Date: 20070705
  Receipt Date: 20070626
  Transmission Date: 20080115
  Serious: Yes (Hospitalization)
  Sender: FDA-Public Use
  Company Number: KR-PFIZER INC-2006077484

PATIENT
  Sex: Female
  Weight: 60 kg

DRUGS (2)
  1. SU-011,248 [Suspect]
     Indication: GASTROINTESTINAL STROMAL TUMOUR
     Route: 048
     Dates: start: 20051117
  2. AMLODIPINE [Concomitant]
     Route: 048

REACTIONS (3)
  - ASCITES [None]
  - AZOTAEMIA [None]
  - ORAL INTAKE REDUCED [None]
